FAERS Safety Report 19441212 (Version 1)
Quarter: 2021Q2

REPORT INFORMATION
  Report Type: Spontaneous
  Country: US (occurrence: US)
  Receive Date: 20210617
  Receipt Date: 20210617
  Transmission Date: 20210717
  Serious: Yes (Life-Threatening, Other)
  Sender: FDA-Public Use
  Company Number: None

PATIENT
  Age: 28 Year
  Sex: Female
  Weight: 67.5 kg

DRUGS (2)
  1. ESTARYLLA [Suspect]
     Active Substance: ETHINYL ESTRADIOL\NORGESTIMATE
     Indication: ENDOMETRIOSIS
     Dosage: ?          QUANTITY:28 TABLET(S);?
     Route: 048
     Dates: start: 20210530, end: 20210613
  2. ZYRTEC?D [Concomitant]
     Active Substance: CETIRIZINE HYDROCHLORIDE\PSEUDOEPHEDRINE HYDROCHLORIDE

REACTIONS (7)
  - Chest pain [None]
  - Pain in extremity [None]
  - Asthenia [None]
  - Facial paralysis [None]
  - Hypoaesthesia [None]
  - Fibrin D dimer increased [None]
  - Vision blurred [None]

NARRATIVE: CASE EVENT DATE: 20210614
